FAERS Safety Report 16307597 (Version 1)
Quarter: 2019Q2

REPORT INFORMATION
  Report Type: Spontaneous
  Country: US (occurrence: US)
  Receive Date: 20190514
  Receipt Date: 20190514
  Transmission Date: 20190711
  Serious: Yes (Other)
  Sender: FDA-Public Use
  Company Number: US-BIO PRODUCTS LABORATORY LTD-2066955

PATIENT
  Age: 64 Year
  Sex: Female

DRUGS (2)
  1. GENERIC IVIG [Suspect]
     Active Substance: HUMAN IMMUNOGLOBULIN G
     Indication: ANAEMIA
     Route: 042
  2. PLASMAPHERESIS [Concomitant]
     Active Substance: UNSPECIFIED INGREDIENT

REACTIONS (3)
  - Drug effective for unapproved indication [None]
  - Complications of transplanted heart [Recovered/Resolved]
  - Off label use [None]
